FAERS Safety Report 25833018 (Version 1)
Quarter: 2025Q3

REPORT INFORMATION
  Report Type: Spontaneous
  Country: GB (occurrence: GB)
  Receive Date: 20250922
  Receipt Date: 20250922
  Transmission Date: 20251020
  Serious: Yes (Other)
  Sender: JOHNSON AND JOHNSON
  Company Number: GB-MHRA-WEBRADR-202509220844185770-LCQTJ

PATIENT
  Age: 78 Year
  Sex: Female
  Weight: 91 kg

DRUGS (1)
  1. XARELTO [Suspect]
     Active Substance: RIVAROXABAN
     Indication: Atrial fibrillation
     Route: 048
     Dates: start: 20250522, end: 20250919

REACTIONS (1)
  - Hypotension [Recovered/Resolved with Sequelae]
